FAERS Safety Report 22259963 (Version 2)
Quarter: 2023Q2

REPORT INFORMATION
  Report Type: Spontaneous
  Country: US (occurrence: US)
  Receive Date: 20230427
  Receipt Date: 20230508
  Transmission Date: 20230722
  Serious: Yes (Death, Other)
  Sender: FDA-Public Use
  Company Number: US-EAGLE PHARMACEUTICALS, INC.-US-2023EAG000132

PATIENT
  Age: 67 Year
  Sex: Male

DRUGS (4)
  1. BYFAVO [Suspect]
     Active Substance: REMIMAZOLAM BESYLATE
     Indication: Sedative therapy
     Dosage: 2 MG
     Route: 042
  2. VASOPRESSIN [Concomitant]
     Active Substance: VASOPRESSIN
     Indication: Hypotension
     Dosage: UNK
     Route: 042
  3. KETAMINE [Concomitant]
     Active Substance: KETAMINE
     Indication: Sedative therapy
     Dosage: UNK
     Route: 065
  4. PROPOFOL [Concomitant]
     Active Substance: PROPOFOL
     Indication: Sedative therapy
     Dosage: UNK
     Route: 065

REACTIONS (3)
  - Bronchospasm [Fatal]
  - Cardio-respiratory arrest [Fatal]
  - Anaphylactic reaction [Fatal]
